FAERS Safety Report 18545896 (Version 1)
Quarter: 2020Q4

REPORT INFORMATION
  Report Type: Not Available
  Country: None (occurrence: None)
  Receive Date: 20201125
  Receipt Date: 20201125
  Transmission Date: 20210114
  Serious: No
  Sender: FDA-Public Use
  Company Number: US-AKORN-149591

PATIENT
  Age: 16 Year
  Sex: Female

DRUGS (1)
  1. MYORISAN [Suspect]
     Active Substance: ISOTRETINOIN

REACTIONS (7)
  - Asthenopia [Unknown]
  - Headache [Unknown]
  - Treatment noncompliance [Not Recovered/Not Resolved]
  - Photophobia [Unknown]
  - Dry skin [Unknown]
  - Ocular discomfort [Unknown]
  - Pain of skin [Unknown]

NARRATIVE: CASE EVENT DATE: 20200518
